FAERS Safety Report 13600871 (Version 2)
Quarter: 2017Q3

REPORT INFORMATION
  Report Type: Spontaneous
  Country: US (occurrence: US)
  Receive Date: 20170601
  Receipt Date: 20170731
  Transmission Date: 20171127
  Serious: Yes (Hospitalization, Other)
  Sender: FDA-Public Use
  Company Number: US-STRIDES ARCOLAB LIMITED-2017SP008991

PATIENT

DRUGS (3)
  1. THYMOGLOBULIN [Concomitant]
     Active Substance: LAPINE T-LYMPHOCYTE IMMUNE GLOBULIN
     Indication: HEART TRANSPLANT
     Dosage: UNK
     Route: 065
  2. TACROLIMUS. [Suspect]
     Active Substance: TACROLIMUS
     Indication: HEART TRANSPLANT
     Dosage: UNKNOWN
     Route: 065
  3. MYCOPHENOLATE MOFETIL. [Suspect]
     Active Substance: MYCOPHENOLATE MOFETIL
     Indication: HEART TRANSPLANT
     Dosage: UNKNOWN
     Route: 065

REACTIONS (16)
  - Respiratory failure [Unknown]
  - Acute kidney injury [Unknown]
  - Hypovolaemia [Unknown]
  - Weight decreased [Unknown]
  - Pancreatitis [Unknown]
  - Enteritis [Recovered/Resolved]
  - Abdominal discomfort [Recovered/Resolved]
  - Autoimmune disorder [Recovered/Resolved]
  - Autoimmune hepatitis [Recovered/Resolved]
  - Abdominal distension [Recovered/Resolved]
  - Anuria [Unknown]
  - Alopecia [Recovered/Resolved]
  - Hypoalbuminaemia [Unknown]
  - Decreased appetite [Recovered/Resolved]
  - Gastrointestinal disorder [Recovered/Resolved]
  - Diarrhoea [Unknown]
